FAERS Safety Report 24436239 (Version 2)
Quarter: 2024Q4

REPORT INFORMATION
  Report Type: Spontaneous
  Country: US (occurrence: US)
  Receive Date: 20241015
  Receipt Date: 20241114
  Transmission Date: 20250114
  Serious: Yes (Death, Hospitalization)
  Sender: TEVA
  Company Number: US-TEVA-VS-3253824

PATIENT
  Age: 49 Year
  Sex: Female

DRUGS (4)
  1. SILDENAFIL [Suspect]
     Active Substance: SILDENAFIL
     Indication: Right-to-left cardiac shunt
     Route: 065
  2. CARDENE [Suspect]
     Active Substance: NICARDIPINE HYDROCHLORIDE
     Indication: Right-to-left cardiac shunt
     Dosage: DRIP
     Route: 065
  3. NITRIC OXIDE [Suspect]
     Active Substance: NITRIC OXIDE
     Indication: Right-to-left cardiac shunt
     Route: 055
  4. MILRINONE [Suspect]
     Active Substance: MILRINONE
     Indication: Right-to-left cardiac shunt
     Dosage: DRIP
     Route: 065

REACTIONS (1)
  - Drug ineffective [Fatal]
